FAERS Safety Report 24847194 (Version 1)
Quarter: 2025Q1

REPORT INFORMATION
  Report Type: Spontaneous
  Country: US (occurrence: US)
  Receive Date: 20250116
  Receipt Date: 20250116
  Transmission Date: 20250409
  Serious: Yes (Hospitalization, Other)
  Sender: STRIDES
  Company Number: US-STRIDES ARCOLAB LIMITED-2024SP013965

PATIENT
  Age: 69 Year
  Sex: Male

DRUGS (6)
  1. PREDNISOLONE [Suspect]
     Active Substance: PREDNISOLONE
     Indication: Chronic lymphocytic leukaemia
     Route: 065
  2. RITUXIMAB [Suspect]
     Active Substance: RITUXIMAB
     Indication: Chronic lymphocytic leukaemia
     Route: 065
  3. CYCLOPHOSPHAMIDE [Suspect]
     Active Substance: CYCLOPHOSPHAMIDE
     Indication: Chronic lymphocytic leukaemia
     Route: 065
  4. VINCRISTINE [Suspect]
     Active Substance: VINCRISTINE
     Indication: Chronic lymphocytic leukaemia
     Route: 065
  5. FILGRASTIM [Suspect]
     Active Substance: FILGRASTIM
     Indication: Chronic lymphocytic leukaemia
     Route: 065
  6. LEUPROLIDE [Concomitant]
     Active Substance: LEUPROLIDE
     Indication: Prostate cancer
     Route: 065

REACTIONS (2)
  - Drug ineffective [Unknown]
  - Malignant neoplasm progression [Unknown]
